FAERS Safety Report 12881991 (Version 2)
Quarter: 2016Q4

REPORT INFORMATION
  Report Type: Spontaneous
  Country: US (occurrence: US)
  Receive Date: 20161025
  Receipt Date: 20161102
  Transmission Date: 20170207
  Serious: Yes (Other)
  Sender: FDA-Public Use
  Company Number: US-AMGEN-USASP2016144331

PATIENT
  Age: 64 Year
  Sex: Female

DRUGS (2)
  1. PROLIA [Suspect]
     Active Substance: DENOSUMAB
     Indication: OSTEOPENIA
     Dosage: UNK
     Route: 065
     Dates: start: 2010
  2. PREDNISONE. [Concomitant]
     Active Substance: PREDNISONE
     Indication: CROHN^S DISEASE
     Dosage: UNK

REACTIONS (6)
  - Off label use [Unknown]
  - Tonsil cancer [Recovered/Resolved]
  - Lymphoma [Recovered/Resolved]
  - Pharyngeal ulceration [Unknown]
  - Drug dose omission [Unknown]
  - Mouth ulceration [Unknown]
